FAERS Safety Report 6053210-4 (Version None)
Quarter: 2009Q1

REPORT INFORMATION
  Report Type: 
  Country: None (occurrence: None)
  Receive Date: 20090123
  Receipt Date: 20090105
  Transmission Date: 20090719
  Serious: Yes (Other)
  Sender: FDA-Public Use
  Company Number: 2009S1000126

PATIENT
  Sex: Female

DRUGS (9)
  1. THIOTEPA [Suspect]
     Indication: BONE MARROW CONDITIONING REGIMEN
     Dosage: 10 MG/KG
     Dates: start: 19920101
  2. MELPHALAN (MELPHALAN) [Suspect]
     Indication: BONE MARROW CONDITIONING REGIMEN
     Dosage: 140 MG/M**2
     Dates: start: 19920101
  3. CYCLOSPORINE [Suspect]
     Indication: GRAFT VERSUS HOST DISEASE
     Dosage: 2 MG/KG; DAILY; INTRAVENOUS
     Route: 042
     Dates: start: 19920101
  4. CYCLOSPORINE [Suspect]
     Indication: PROPHYLAXIS
     Dosage: 2 MG/KG; DAILY; INTRAVENOUS
     Route: 042
     Dates: start: 19920101
  5. CYCLOSPORINE [Suspect]
     Indication: GRAFT VERSUS HOST DISEASE
     Dosage: 2 MG/KG; DAILY; INTRAVENOUS
     Route: 042
     Dates: start: 19920101
  6. CYCLOSPORINE [Suspect]
     Indication: PROPHYLAXIS
     Dosage: 2 MG/KG; DAILY; INTRAVENOUS
     Route: 042
     Dates: start: 19920101
  7. METHOTREXATE [Suspect]
     Indication: PROPHYLAXIS
     Dosage: 15 MG/M**2; DAILY, 10 MG/M**2; DAILY
     Dates: start: 19920101
  8. METHOTREXATE [Suspect]
     Indication: PROPHYLAXIS
     Dosage: 15 MG/M**2; DAILY, 10 MG/M**2; DAILY
     Dates: start: 19920101
  9. PREDNISONE TAB [Suspect]
     Indication: GRAFT VERSUS HOST DISEASE
     Dates: start: 19920101

REACTIONS (4)
  - BASAL CELL CARCINOMA [None]
  - CHRONIC GRAFT VERSUS HOST DISEASE [None]
  - GROWTH RETARDATION [None]
  - HYPOTHYROIDISM [None]
